FAERS Safety Report 4878692-2 (Version None)
Quarter: 2006Q1

REPORT INFORMATION
  Report Type: 
  Country: None (occurrence: None)
  Receive Date: 20060112
  Receipt Date: 20051228
  Transmission Date: 20060701
  Serious: Yes (Other)
  Sender: FDA-Public Use
  Company Number: PHEH2005US13899

PATIENT
  Age: 38 Year
  Sex: Female

DRUGS (3)
  1. FEMARA [Suspect]
     Indication: INFERTILITY
     Dosage: 1 DOSE
     Dates: start: 20051001
  2. FEMARA [Suspect]
     Dosage: 5 MG, QD FOR 5 DAYS
     Dates: start: 20051111
  3. OVIDREL [Concomitant]
     Dates: start: 20051027

REACTIONS (4)
  - ABORTION SPONTANEOUS [None]
  - DRUG EXPOSURE BEFORE PREGNANCY [None]
  - METRORRHAGIA [None]
  - THROMBOSIS [None]
